FAERS Safety Report 7433033-1 (Version None)
Quarter: 2011Q2

REPORT INFORMATION
  Report Type: 
  Country: None (occurrence: None)
  Receive Date: 20110422
  Receipt Date: 20110418
  Transmission Date: 20111010
  Serious: Yes (Death)
  Sender: FDA-Public Use
  Company Number: FR-MERCK-1104FRA00121

PATIENT
  Age: 77 Year
  Sex: Male

DRUGS (6)
  1. CANCIDAS [Suspect]
     Indication: INFECTION
     Route: 042
  2. CEFOTAXIME SODIUM [Concomitant]
     Indication: INFECTION
     Route: 065
  3. FLUCONAZOLE [Concomitant]
     Indication: INFECTION
     Route: 065
  4. FLUCONAZOLE [Concomitant]
     Route: 065
  5. CANCIDAS [Suspect]
     Route: 042
  6. PIPERACILLIN SODIUM AND TAZOBACTAM SODIUM [Concomitant]
     Indication: INFECTION
     Route: 065

REACTIONS (6)
  - DRUG RESISTANCE [None]
  - ABDOMINAL PAIN [None]
  - DYSPNOEA [None]
  - ANASTOMOTIC STENOSIS [None]
  - DEATH [None]
  - PYREXIA [None]
